FAERS Safety Report 26082917 (Version 2)
Quarter: 2025Q4

REPORT INFORMATION
  Report Type: Spontaneous
  Country: GB (occurrence: GB)
  Receive Date: 20251124
  Receipt Date: 20251208
  Transmission Date: 20260118
  Serious: Yes (Hospitalization, Other)
  Sender: MYLAN
  Company Number: GB-MYLANLABS-2025M1054948

PATIENT
  Sex: Female

DRUGS (3)
  1. CLOZARIL [Suspect]
     Active Substance: CLOZAPINE
     Indication: Schizoaffective disorder
     Dosage: UNK
  2. CLOZARIL [Suspect]
     Active Substance: CLOZAPINE
     Dosage: 75 MILLIGRAM, BID (75MG TWICE DAILY)
     Dates: start: 20250805, end: 20251113
  3. PROCYCLIDINE [Concomitant]
     Active Substance: PROCYCLIDINE
     Indication: Cholinergic rebound syndrome
     Dosage: 5 MILLIGRAM, BID

REACTIONS (9)
  - Schizophrenia [Unknown]
  - Loss of consciousness [Unknown]
  - Eosinophilia [Unknown]
  - Orthostatic hypotension [Unknown]
  - Palpitations [Unknown]
  - Dyspnoea [Unknown]
  - Dizziness [Unknown]
  - Limb injury [Unknown]
  - Off label use [Unknown]
